FAERS Safety Report 9803147 (Version 1)
Quarter: 2014Q1

REPORT INFORMATION
  Report Type: Spontaneous
  Country: US (occurrence: None)
  Receive Date: 20140107
  Receipt Date: 20140107
  Transmission Date: 20141002
  Serious: Yes (Other)
  Sender: FDA-Public Use
  Company Number: None

PATIENT
  Age: 7 Year
  Sex: Female
  Weight: 33.11 kg

DRUGS (1)
  1. TAMIFLU [Suspect]
     Indication: INFLUENZA
     Route: 048
     Dates: start: 20131223, end: 20131225

REACTIONS (6)
  - Urticaria [None]
  - Urticaria [None]
  - Cough [None]
  - Abnormal behaviour [None]
  - Aggression [None]
  - Emotional disorder [None]
